FAERS Safety Report 5197333-0 (Version None)
Quarter: 2007Q1

REPORT INFORMATION
  Report Type: 
  Country: None (occurrence: None)
  Receive Date: 20070103
  Receipt Date: 20061220
  Transmission Date: 20070707
  Serious: Yes (Hospitalization)
  Sender: FDA-Public Use
  Company Number: FR-GILEAD-2006-0010876

PATIENT
  Age: 51 Year
  Sex: Male

DRUGS (8)
  1. TRUVADA [Suspect]
     Indication: HIV INFECTION
     Dates: start: 20060215, end: 20061114
  2. KALETRA [Concomitant]
     Indication: HIV INFECTION
     Route: 048
     Dates: start: 20060215, end: 20061114
  3. AMITRIPTYLINE HCL [Concomitant]
     Indication: DYSTHYMIC DISORDER
     Route: 048
     Dates: start: 20060215, end: 20061114
  4. LEXOMIL [Concomitant]
     Indication: DYSTHYMIC DISORDER
     Route: 048
     Dates: end: 20061109
  5. CIPROFLOXACIN [Concomitant]
     Route: 048
     Dates: end: 20061109
  6. SEROPLEX [Concomitant]
     Route: 048
     Dates: end: 20061109
  7. IBUPROFEN [Concomitant]
  8. FLECTOR [Concomitant]

REACTIONS (11)
  - ANOREXIA [None]
  - ASTHENIA [None]
  - DIARRHOEA [None]
  - DYSPNOEA [None]
  - METABOLIC ACIDOSIS [None]
  - NAUSEA [None]
  - OEDEMA [None]
  - RENAL FAILURE ACUTE [None]
  - RENAL TUBULAR NECROSIS [None]
  - TUBULOINTERSTITIAL NEPHRITIS [None]
  - VOMITING [None]
